FAERS Safety Report 4957421-8 (Version None)
Quarter: 2006Q1

REPORT INFORMATION
  Report Type: 
  Country: None (occurrence: None)
  Receive Date: 20060327
  Receipt Date: 20060317
  Transmission Date: 20060701
  Serious: Yes (Hospitalization, Other)
  Sender: FDA-Public Use
  Company Number: 2006-03-0201

PATIENT
  Age: 64 Year
  Sex: Male

DRUGS (5)
  1. PEG-INTRON [Suspect]
     Indication: HEPATITIS C
     Dosage: 100 MCG QW SUBCUTANEOUS
     Route: 058
     Dates: start: 20051013, end: 20060228
  2. REBETOL [Suspect]
     Indication: HEPATITIS C
     Dosage: 600 MG ORAL
     Route: 048
     Dates: start: 20051013, end: 20060228
  3. DAI-KENCHU-TO ORAL POWDER [Concomitant]
  4. NORVASC [Concomitant]
  5. NORVASC [Concomitant]

REACTIONS (3)
  - CEREBRAL INFARCTION [None]
  - DISTURBANCE IN ATTENTION [None]
  - DIZZINESS [None]
